FAERS Safety Report 5358119-7 (Version None)
Quarter: 2007Q2

REPORT INFORMATION
  Report Type: 
  Country: None (occurrence: None)
  Receive Date: 20070530
  Receipt Date: 20061110
  Transmission Date: 20071010
  Serious: Yes (Hospitalization)
  Sender: FDA-Public Use
  Company Number: US200608003979

PATIENT
  Age: 39 Year
  Sex: Female
  Weight: 129.7 kg

DRUGS (10)
  1. ZYPREXA [Suspect]
     Dosage: SEE IMAGE
     Dates: start: 19980801
  2. ZYPREXA [Suspect]
     Dosage: SEE IMAGE
     Dates: start: 19990101
  3. ZYPREXA [Suspect]
     Dosage: SEE IMAGE
     Dates: start: 20010101
  4. ZYPREXA [Suspect]
     Dosage: SEE IMAGE
     Dates: start: 20040101
  5. PROZAC [Concomitant]
  6. PAXIL [Concomitant]
  7. REMERON [Concomitant]
  8. SEROQUEL /UNK/ (QUETIAPINE FUMARATE) [Concomitant]
  9. RISPERDAL /SWE/ (RISPERIDONE) [Concomitant]
  10. ZOLOFT [Concomitant]

REACTIONS (6)
  - BLOOD CHOLESTEROL INCREASED [None]
  - CHOLELITHIASIS [None]
  - DIABETES MELLITUS [None]
  - HYPERGLYCAEMIA [None]
  - HYPERTENSION [None]
  - OBESITY [None]
